FAERS Safety Report 25247997 (Version 2)
Quarter: 2025Q2

REPORT INFORMATION
  Report Type: Spontaneous
  Country: BR (occurrence: BR)
  Receive Date: 20250429
  Receipt Date: 20250501
  Transmission Date: 20250717
  Serious: Yes (Hospitalization)
  Sender: RANBAXY
  Company Number: BR-SUN PHARMACEUTICAL INDUSTRIES LTD-2025R1-505026

PATIENT
  Age: 64 Year
  Sex: Female
  Weight: 60 kg

DRUGS (2)
  1. NORTRIPTYLINE [Suspect]
     Active Substance: NORTRIPTYLINE
     Indication: Headache
     Dosage: 25 MILLIGRAM, DAILY
     Route: 048
     Dates: start: 20250408, end: 20250409
  2. GLIFAGE [Concomitant]
     Active Substance: METFORMIN HYDROCHLORIDE
     Indication: Diabetes mellitus
     Route: 065

REACTIONS (3)
  - Dry mouth [Recovering/Resolving]
  - Malaise [Recovering/Resolving]
  - Urticaria [Recovering/Resolving]

NARRATIVE: CASE EVENT DATE: 20250408
